FAERS Safety Report 9641503 (Version 1)
Quarter: 2013Q4

REPORT INFORMATION
  Report Type: Spontaneous
  Country: UA (occurrence: None)
  Receive Date: 20131021
  Receipt Date: 20131021
  Transmission Date: 20140711
  Serious: Yes (Other)
  Sender: FDA-Public Use
  Company Number: B0931854A

PATIENT
  Sex: Female

DRUGS (1)
  1. FLUTICASON PROPIONATE [Suspect]
     Indication: ASTHMA
     Route: 055

REACTIONS (2)
  - Abortion spontaneous [None]
  - Exposure during pregnancy [None]
